FAERS Safety Report 6122931-7 (Version None)
Quarter: 2009Q1

REPORT INFORMATION
  Report Type: 
  Country: None (occurrence: None)
  Receive Date: 20090318
  Receipt Date: 20090311
  Transmission Date: 20090719
  Serious: Yes (Death, Hospitalization, Other)
  Sender: FDA-Public Use
  Company Number: PHHY2009BR09709

PATIENT
  Sex: Female

DRUGS (8)
  1. EXELON [Suspect]
     Indication: DEMENTIA WITH LEWY BODIES
     Dosage: 9 MG/5CM2, ONCE DAILY
     Route: 062
     Dates: start: 20081101
  2. EXELON [Suspect]
     Indication: PARKINSONISM
     Dosage: 48MG/10CM2, ONCE DAILY
     Route: 062
     Dates: start: 20081201
  3. FORASEQ [Concomitant]
     Indication: CHRONIC OBSTRUCTIVE PULMONARY DISEASE
  4. TRILEPTAL [Concomitant]
     Indication: PAIN
  5. OXYGEN THERAPY [Concomitant]
  6. DIMORF [Concomitant]
     Dosage: 30 MG, BID
  7. DULCOLAX [Concomitant]
  8. SPIRIVA [Concomitant]

REACTIONS (19)
  - ANOREXIA [None]
  - APPLICATION SITE ERYTHEMA [None]
  - ASTHENIA [None]
  - BEDRIDDEN [None]
  - BLOOD TEST ABNORMAL [None]
  - CHRONIC OBSTRUCTIVE PULMONARY DISEASE [None]
  - CONDITION AGGRAVATED [None]
  - CONSTIPATION [None]
  - DECREASED APPETITE [None]
  - DEMENTIA [None]
  - ENEMA ADMINISTRATION [None]
  - FALL [None]
  - HYPERTENSION [None]
  - ORAL DISCHARGE [None]
  - OSTEOPOROSIS [None]
  - RESPIRATORY FAILURE [None]
  - SPINAL FRACTURE [None]
  - URINARY TRACT INFECTION [None]
  - VOMITING [None]
